FAERS Safety Report 8471313-1 (Version None)
Quarter: 2012Q2

REPORT INFORMATION
  Report Type: 
  Country: None (occurrence: None)
  Receive Date: 20120627
  Receipt Date: 20120619
  Transmission Date: 20120825
  Serious: Yes (Other)
  Sender: FDA-Public Use
  Company Number: US-NOVOPROD-338311

PATIENT
  Age: 64 Year
  Sex: Male
  Weight: 117.4 kg

DRUGS (9)
  1. LISINOPRIL AND HYDROCHLOROTHIAZIDE [Concomitant]
     Dosage: 20/125
     Route: 065
  2. LEVITRA [Concomitant]
     Indication: PRODUCT USED FOR UNKNOWN INDICATION
     Dosage: 20 MG, PRN
     Route: 065
  3. VICTOZA [Suspect]
     Dosage: 1.2 MG, QD
     Route: 058
  4. WARFARIN SODIUM [Concomitant]
     Indication: PRODUCT USED FOR UNKNOWN INDICATION
     Dosage: 2 MG, QD
  5. VICTOZA [Suspect]
     Dosage: 1.8 MG, QD
     Route: 058
     Dates: end: 20111025
  6. METFORMIN HCL [Concomitant]
     Indication: PRODUCT USED FOR UNKNOWN INDICATION
     Dosage: 1000, UNK, BID
  7. METOPROLOL TARTRATE [Concomitant]
     Indication: PRODUCT USED FOR UNKNOWN INDICATION
     Dosage: 100 MG, QD, 2 PILLS ONCE A DAY
  8. VICTOZA [Suspect]
     Indication: TYPE 2 DIABETES MELLITUS
     Dosage: 0.6 MG, QD
     Route: 058
     Dates: start: 20110920
  9. LANTUS [Concomitant]
     Indication: TYPE 2 DIABETES MELLITUS
     Dosage: 80 U, QD
     Route: 058

REACTIONS (1)
  - PANCREATITIS ACUTE [None]
